FAERS Safety Report 5330666-3 (Version None)
Quarter: 2007Q2

REPORT INFORMATION
  Report Type: 
  Country: None (occurrence: None)
  Receive Date: 20070522
  Receipt Date: 20070511
  Transmission Date: 20071010
  Serious: Yes (Hospitalization, Other)
  Sender: FDA-Public Use
  Company Number: GB-JNJFOC-20070503136

PATIENT
  Sex: Female
  Weight: 85 kg

DRUGS (11)
  1. REMICADE [Suspect]
     Indication: RHEUMATOID ARTHRITIS
     Route: 042
  2. METHOTREXATE [Concomitant]
  3. PREDNISOLONE [Concomitant]
  4. AMITRIPTYLINE HCL [Concomitant]
  5. FOLIC ACID [Concomitant]
  6. FOSAMAX [Concomitant]
  7. FUROSEMIDE [Concomitant]
  8. PAMIDRONATE DISODIUM [Concomitant]
  9. VIOXX [Concomitant]
  10. WARFARIN SODIUM [Concomitant]
  11. ZOTON [Concomitant]

REACTIONS (1)
  - EMPHYSEMA [None]
